FAERS Safety Report 5550735-2 (Version None)
Quarter: 2007Q4

REPORT INFORMATION
  Report Type: 
  Country: None (occurrence: None)
  Receive Date: 20071210
  Receipt Date: 20071128
  Transmission Date: 20080405
  Serious: Yes (Death)
  Sender: FDA-Public Use
  Company Number: 2007BI025337

PATIENT
  Age: 45 Year
  Sex: Female
  Weight: 42 kg

DRUGS (1)
  1. NATALIZUMAB [Suspect]
     Indication: MULTIPLE SCLEROSIS
     Dosage: QM; IV
     Route: 042

REACTIONS (1)
  - MULTIPLE SCLEROSIS RELAPSE [None]
